FAERS Safety Report 8759082 (Version 3)
Quarter: 2012Q4

REPORT INFORMATION
  Report Type: Report from Study
  Country: JP (occurrence: JP)
  Receive Date: 20120829
  Receipt Date: 20121116
  Transmission Date: 20130627
  Serious: Yes (Other)
  Sender: FDA-Public Use
  Company Number: JP-009507513-1208JPN009812

PATIENT
  Age: 71 Year
  Sex: Male
  Weight: 56 kg

DRUGS (11)
  1. PEGINTRON [Suspect]
     Indication: HEPATITIS C
     Dosage: 1.5 Microgram per kilogram, qw
     Route: 058
     Dates: start: 20120413, end: 20120511
  2. PEGINTRON [Suspect]
     Dosage: 1.0 Microgram per kilogram, qw
     Route: 058
     Dates: start: 20120518, end: 20120713
  3. REBETOL [Suspect]
     Indication: HEPATITIS C
     Dosage: 600 mg, qd
     Route: 048
     Dates: start: 20120413, end: 20120503
  4. REBETOL [Suspect]
     Dosage: 200 mg, qd
     Route: 048
     Dates: start: 20120504, end: 20120510
  5. REBETOL [Suspect]
     Dosage: 400 mg, qd
     Route: 048
     Dates: start: 20120511, end: 20120517
  6. REBETOL [Suspect]
     Dosage: 200 mg, qd
     Route: 048
     Dates: start: 20120518, end: 20120720
  7. TELAVIC [Suspect]
     Indication: HEPATITIS C
     Dosage: 1500 mg, qd
     Route: 048
     Dates: start: 20120413, end: 20120510
  8. TELAVIC [Suspect]
     Dosage: 1000 mg, qd
     Route: 048
     Dates: start: 20120511, end: 20120706
  9. TOWARAT [Concomitant]
     Indication: PRINZMETAL ANGINA
     Dosage: 20 mg, qd
     Route: 048
  10. CALONAL [Concomitant]
     Indication: PROPHYLAXIS
     Dosage: 1200 mg, qd
     Route: 048
     Dates: start: 20120413, end: 20120720
  11. JUZEN-TAIHO-TO [Concomitant]
     Indication: PROPHYLAXIS
     Dosage: 7.5 g, qd
     Route: 048
     Dates: end: 20120720

REACTIONS (2)
  - Drug eruption [Recovered/Resolved]
  - Drug eruption [Recovering/Resolving]
